FAERS Safety Report 9332613 (Version 2)
Quarter: 2013Q2

REPORT INFORMATION
  Report Type: Spontaneous
  Country: US (occurrence: US)
  Receive Date: 20130606
  Receipt Date: 20130618
  Transmission Date: 20140414
  Serious: No
  Sender: FDA-Public Use
  Company Number: US-TEVA-406643USA

PATIENT
  Sex: Male

DRUGS (2)
  1. PROAIR HFA [Suspect]
  2. QVAR [Suspect]

REACTIONS (1)
  - Dyspnoea [Unknown]
